FAERS Safety Report 5505664-7 (Version None)
Quarter: 2007Q4

REPORT INFORMATION
  Report Type: 
  Country: None (occurrence: None)
  Receive Date: 20071102
  Receipt Date: 20071025
  Transmission Date: 20080405
  Serious: Yes (Life-Threatening)
  Sender: FDA-Public Use
  Company Number: US-ABBOTT-07P-163-0422298-00

PATIENT
  Sex: Female
  Weight: 89 kg

DRUGS (4)
  1. ZEMPLAR [Suspect]
     Indication: CALCIUM METABOLISM DISORDER
     Route: 042
     Dates: end: 20071001
  2. ZEMPLAR [Suspect]
     Indication: PHOSPHORUS METABOLISM DISORDER
     Route: 042
     Dates: end: 20071001
  3. EPOETIN ALFA [Concomitant]
     Indication: DRUG USE FOR UNKNOWN INDICATION
     Route: 058
  4. UNSPECIFIED MEDICATIONS [Concomitant]
     Indication: DRUG USE FOR UNKNOWN INDICATION

REACTIONS (2)
  - CARDIAC ARREST [None]
  - RESPIRATORY ARREST [None]
